FAERS Safety Report 14669285 (Version 1)
Quarter: 2018Q1

REPORT INFORMATION
  Report Type: Spontaneous
  Country: US (occurrence: US)
  Receive Date: 20180322
  Receipt Date: 20180322
  Transmission Date: 20180509
  Serious: Yes (Other)
  Sender: FDA-Public Use
  Company Number: US-MYLANLABS-2018M1017020

PATIENT
  Age: 33 Year
  Sex: Female

DRUGS (1)
  1. AMPICILLIN [Suspect]
     Active Substance: AMPICILLIN
     Indication: URINARY TRACT INFECTION
     Dosage: UNK
     Route: 065

REACTIONS (2)
  - Klebsiella infection [Unknown]
  - Enterocolitis haemorrhagic [Unknown]
